FAERS Safety Report 18575061 (Version 15)
Quarter: 2025Q2

REPORT INFORMATION
  Report Type: Spontaneous
  Country: US (occurrence: US)
  Receive Date: 20201203
  Receipt Date: 20250424
  Transmission Date: 20250716
  Serious: Yes (Other)
  Sender: PFIZER
  Company Number: US-PFIZER INC-2020473637

PATIENT
  Age: 75 Year
  Sex: Female

DRUGS (2)
  1. XELJANZ XR [Suspect]
     Active Substance: TOFACITINIB CITRATE
     Indication: Arthropathy
  2. METHOTREXATE [Concomitant]
     Active Substance: METHOTREXATE

REACTIONS (12)
  - Road traffic accident [Unknown]
  - Choking [Unknown]
  - Meniscus injury [Unknown]
  - Hypertension [Unknown]
  - Joint injury [Unknown]
  - Amnesia [Recovering/Resolving]
  - Pain in extremity [Unknown]
  - Vertigo [Recovering/Resolving]
  - Pain [Unknown]
  - Gait disturbance [Unknown]
  - Depressed mood [Unknown]
  - Gait inability [Recovered/Resolved]

NARRATIVE: CASE EVENT DATE: 20240101
